FAERS Safety Report 8231357-1 (Version None)
Quarter: 2012Q1

REPORT INFORMATION
  Report Type: 
  Country: None (occurrence: None)
  Receive Date: 20120323
  Receipt Date: 20120319
  Transmission Date: 20120608
  Serious: Yes (Death, Other)
  Sender: FDA-Public Use
  Company Number: US-PFIZER INC-2012051729

PATIENT
  Sex: Male
  Weight: 58.05 kg

DRUGS (10)
  1. ZOLOFT [Concomitant]
     Dosage: 50 MG, 1X/DAY
  2. AVELOX [Concomitant]
     Dosage: 400 MG, 1X/DAY
  3. VFEND [Suspect]
     Indication: PNEUMONIA
     Dosage: 200 MG, 2X/DAY
     Route: 048
     Dates: start: 20110601
  4. ALLOPURINOL [Concomitant]
     Dosage: 100 MG, 1X/DAY
  5. LEVAQUIN [Concomitant]
     Dosage: 500 MG, 1X/DAY
  6. KEFLEX [Concomitant]
     Dosage: 500 MG, 4X/DAY
  7. BACTRIM [Concomitant]
     Dosage: 800/160 MG, 2X/DAY
  8. ZOVIRAX [Concomitant]
     Dosage: 400 MG, 2X/DAY
  9. COREG [Concomitant]
     Dosage: 625 MG, 2X/DAY
  10. PROMETHAZINE [Concomitant]
     Dosage: 25 MG, 4X/DAY

REACTIONS (1)
  - PNEUMONIA [None]
